FAERS Safety Report 8842343 (Version 2)
Quarter: 2012Q4

REPORT INFORMATION
  Report Type: 
  Country: BR (occurrence: BR)
  Receive Date: 20121016
  Receipt Date: 20121023
  Transmission Date: 20130627
  Serious: Yes (Other)
  Sender: FDA-Public Use
  Company Number: BR-AMGEN-BRASP2012065638

PATIENT
  Sex: Male

DRUGS (1)
  1. GRANULOKINE [Suspect]
     Indication: BONE MARROW CONDITIONING REGIMEN
     Dosage: UNK

REACTIONS (3)
  - Sensory loss [Unknown]
  - Somnolence [Unknown]
  - Amnesia [Unknown]
